FAERS Safety Report 10150704 (Version 2)
Quarter: 2014Q2

REPORT INFORMATION
  Report Type: Spontaneous
  Country: FI (occurrence: FI)
  Receive Date: 20140502
  Receipt Date: 20140502
  Transmission Date: 20141212
  Serious: Yes (Congenital Anomaly, Other)
  Sender: FDA-Public Use
  Company Number: FI-ABBVIE-14P-055-1228628-00

PATIENT
  Age: 1 Day
  Sex: Female

DRUGS (1)
  1. DEPRAKINE [Suspect]
     Indication: MATERNAL EXPOSURE TIMING UNSPECIFIED
     Route: 064

REACTIONS (13)
  - Adenoidal disorder [Unknown]
  - Developmental delay [Unknown]
  - Pneumonia [Unknown]
  - Ear infection [Unknown]
  - Autism spectrum disorder [Unknown]
  - Adjustment disorder with mixed disturbance of emotion and conduct [Unknown]
  - Mental impairment [Unknown]
  - Autism [Unknown]
  - Disturbance in attention [Unknown]
  - Speech disorder developmental [Unknown]
  - Motor developmental delay [Unknown]
  - Exposure during breast feeding [Unknown]
  - Foetal exposure during pregnancy [Unknown]
